FAERS Safety Report 6896729-6 (Version None)
Quarter: 2010Q3

REPORT INFORMATION
  Report Type: 
  Country: None (occurrence: None)
  Receive Date: 20100802
  Receipt Date: 20070202
  Transmission Date: 20110219
  Serious: No
  Sender: FDA-Public Use
  Company Number: US-PFIZER INC-2007010176

PATIENT
  Sex: Female

DRUGS (4)
  1. LYRICA [Suspect]
     Dates: start: 20070127
  2. GABAPENTIN [Suspect]
  3. VICODIN [Concomitant]
  4. LUMIGAN [Concomitant]

REACTIONS (2)
  - BLOOD GLUCOSE [None]
  - WEIGHT INCREASED [None]
